FAERS Safety Report 7876428-4 (Version None)
Quarter: 2011Q4

REPORT INFORMATION
  Report Type: 
  Country: None (occurrence: None)
  Receive Date: 20111031
  Receipt Date: 20111018
  Transmission Date: 20120403
  Serious: Yes (Other)
  Sender: FDA-Public Use
  Company Number: PHHY2011BR92289

PATIENT
  Age: 85 Year
  Sex: Female

DRUGS (1)
  1. EXELON [Suspect]
     Indication: DEMENTIA ALZHEIMER'S TYPE
     Dosage: 1.5 MG, UNK
     Dates: start: 20110101

REACTIONS (6)
  - DRUG INEFFECTIVE [None]
  - RENAL IMPAIRMENT [None]
  - APHAGIA [None]
  - DEMENTIA ALZHEIMER'S TYPE [None]
  - PYREXIA [None]
  - DANDRUFF [None]
